FAERS Safety Report 4342188-7 (Version None)
Quarter: 2004Q2

REPORT INFORMATION
  Report Type: 
  Country: None (occurrence: None)
  Receive Date: 20040409
  Receipt Date: 20031205
  Transmission Date: 20050107
  Serious: Yes (Hospitalization)
  Sender: FDA-Public Use
  Company Number: 03P-163-0244148-00

PATIENT
  Age: 29 Year
  Sex: Female
  Weight: 70.3075 kg

DRUGS (8)
  1. DEPAKOTE [Suspect]
     Indication: BIPOLAR DISORDER
     Dosage: 500 MG, PER ORAL; 1200 MG, PER ORAL
     Route: 048
     Dates: start: 20020131, end: 20021001
  2. DEPAKOTE [Suspect]
     Indication: BIPOLAR DISORDER
     Dosage: 500 MG, PER ORAL; 1200 MG, PER ORAL
     Route: 048
     Dates: start: 20021001, end: 20021223
  3. MEDINITE [Suspect]
     Indication: NASOPHARYNGITIS
     Dosage: 2 OZ, AS REQUIRED, PER ORAL
     Route: 048
     Dates: start: 20021101, end: 20021201
  4. ETHANOL [Suspect]
  5. ZYPREXA ZYDIS [Concomitant]
  6. VENLAFAXINE HCL [Concomitant]
  7. BUPROPION HYDROCHLORIDE [Concomitant]
  8. QUETIAPINE [Concomitant]

REACTIONS (2)
  - DRUG LEVEL DECREASED [None]
  - MANIA [None]
